FAERS Safety Report 25170614 (Version 1)
Quarter: 2025Q2

REPORT INFORMATION
  Report Type: Spontaneous
  Country: BR (occurrence: BR)
  Receive Date: 20250408
  Receipt Date: 20250408
  Transmission Date: 20250716
  Serious: Yes (Other)
  Sender: NOVO NORDISK
  Company Number: BR-NOVOPROD-1401728

PATIENT
  Sex: Female
  Weight: 95 kg

DRUGS (12)
  1. SAXENDA [Suspect]
     Active Substance: LIRAGLUTIDE
     Indication: Glucose tolerance impaired
  2. SAXENDA [Suspect]
     Active Substance: LIRAGLUTIDE
  3. SAXENDA [Suspect]
     Active Substance: LIRAGLUTIDE
  4. SAXENDA [Suspect]
     Active Substance: LIRAGLUTIDE
     Dosage: 3 MG, QD
  5. SAXENDA [Suspect]
     Active Substance: LIRAGLUTIDE
     Indication: Weight control
  6. XIGDUO XR [Concomitant]
     Active Substance: DAPAGLIFLOZIN PROPANEDIOL\METFORMIN HYDROCHLORIDE
     Indication: Glucose tolerance impaired
  7. BENICAR [Concomitant]
     Active Substance: OLMESARTAN MEDOXOMIL
     Indication: Hypertension
     Dosage: 20 MG, QD (1 TABLET IN THE MORNING)
  8. IRON POLYMALTOSE [Concomitant]
     Active Substance: IRON POLYMALTOSE
     Indication: Mineral supplementation
  9. FISIOGEN FERRO FORTE [Concomitant]
     Indication: Mineral supplementation
  10. CALDE MAX [CALCIUM;COLECALCIFEROL;COLLAGEN;HYALURONIC ACID;MAGNESIUM;M [Concomitant]
     Indication: Vitamin supplementation
  11. ALTA D [Concomitant]
     Indication: Vitamin supplementation
  12. DOZEMAST [Concomitant]
     Indication: Vitamin supplementation
     Dosage: 1000 IU, QD (1 TABLET IN THE MORNING)

REACTIONS (1)
  - Arrhythmia [Not Recovered/Not Resolved]

NARRATIVE: CASE EVENT DATE: 20240301
